FAERS Safety Report 6728555-2 (Version None)
Quarter: 2010Q2

REPORT INFORMATION
  Report Type: 
  Country: None (occurrence: None)
  Receive Date: 20100517
  Receipt Date: 20100505
  Transmission Date: 20101027
  Serious: Yes (Other)
  Sender: FDA-Public Use
  Company Number: US-PFIZER INC-2010057329

PATIENT
  Sex: Female

DRUGS (1)
  1. LYRICA [Suspect]
     Dosage: UNK

REACTIONS (8)
  - AGGRESSION [None]
  - AGITATION [None]
  - DYSPNOEA [None]
  - GASTROINTESTINAL DISORDER [None]
  - MANIA [None]
  - MOOD SWINGS [None]
  - PARALYSIS [None]
  - SWOLLEN TONGUE [None]
